FAERS Safety Report 9123195 (Version 1)
Quarter: 2013Q1

REPORT INFORMATION
  Report Type: Spontaneous
  Country: IT (occurrence: IT)
  Receive Date: 20130227
  Receipt Date: 20130227
  Transmission Date: 20140127
  Serious: Yes (Other)
  Sender: FDA-Public Use
  Company Number: IT-TEVA-388511ISR

PATIENT
  Age: 62 Year
  Sex: Male

DRUGS (7)
  1. OXALIPLATINO [Suspect]
     Indication: COLON NEOPLASM
     Dosage: 150MG CYCLICAL
     Route: 042
     Dates: start: 20120903, end: 20130107
  2. ZOFRAN [Concomitant]
  3. BLOPRESS [Concomitant]
     Dosage: 8MG
  4. PEPTAZOL [Concomitant]
     Dosage: 40MG
  5. ACIDO FOLICO [Concomitant]
  6. FLUOROURACILE [Concomitant]
  7. DOXAZOSINE [Concomitant]

REACTIONS (3)
  - Hyperhidrosis [Recovered/Resolved]
  - Paraesthesia [Recovered/Resolved]
  - Chest pain [Recovered/Resolved]
